FAERS Safety Report 20061493 (Version 9)
Quarter: 2022Q2

REPORT INFORMATION
  Report Type: Report from Study
  Country: US (occurrence: US)
  Receive Date: 20211112
  Receipt Date: 20220613
  Transmission Date: 20220721
  Serious: Yes (Hospitalization, Other)
  Sender: FDA-Public Use
  Company Number: US-NOVARTISTESTPH-NVSC2021US258509

PATIENT
  Age: 63 Year
  Sex: Female

DRUGS (4)
  1. ENTRESTO [Suspect]
     Active Substance: SACUBITRIL\VALSARTAN
     Indication: Product used for unknown indication
     Dosage: UNK
     Route: 065
  2. VALSARTAN [Suspect]
     Active Substance: VALSARTAN
     Indication: Product used for unknown indication
     Dosage: UNK
     Route: 065
  3. SPIRONOLACTONE [Suspect]
     Active Substance: SPIRONOLACTONE
     Indication: Product used for unknown indication
     Dosage: UNK
     Route: 065
  4. ELIQUIS [Concomitant]
     Active Substance: APIXABAN
     Indication: Product used for unknown indication
     Dosage: UNK UNK, QD
     Route: 065

REACTIONS (15)
  - Fluid retention [Unknown]
  - Haemorrhage [Not Recovered/Not Resolved]
  - Hip fracture [Unknown]
  - Dysstasia [Unknown]
  - Paranoia [Unknown]
  - Decreased activity [Unknown]
  - Memory impairment [Not Recovered/Not Resolved]
  - Bone disorder [Unknown]
  - Balance disorder [Unknown]
  - Neuralgia [Unknown]
  - Muscular weakness [Unknown]
  - Fall [Unknown]
  - Fatigue [Unknown]
  - Headache [Unknown]
  - Product dose omission issue [Unknown]
